FAERS Safety Report 13575292 (Version 1)
Quarter: 2017Q2

REPORT INFORMATION
  Report Type: Spontaneous
  Country: US (occurrence: US)
  Receive Date: 20170523
  Receipt Date: 20170523
  Transmission Date: 20170830
  Serious: No
  Sender: FDA-Public Use
  Company Number: None

PATIENT
  Age: 63 Year
  Sex: Male

DRUGS (1)
  1. IMATINIB MES [Suspect]
     Active Substance: IMATINIB MESYLATE

REACTIONS (4)
  - Cardiac disorder [None]
  - Fluid retention [None]
  - Swelling [None]
  - Fatigue [None]

NARRATIVE: CASE EVENT DATE: 20170520
